FAERS Safety Report 4718019-X (Version None)
Quarter: 2005Q3

REPORT INFORMATION
  Report Type: 
  Country: None (occurrence: None)
  Receive Date: 20050718
  Receipt Date: 20050311
  Transmission Date: 20060218
  Serious: No
  Sender: FDA-Public Use
  Company Number: 2005000544

PATIENT
  Age: 79 Year
  Sex: Male
  Weight: 82.5547 kg

DRUGS (3)
  1. TARCEVA [Suspect]
     Indication: NON-SMALL CELL LUNG CANCER METASTATIC
     Dosage: 150 MG (QD), ORAL
     Route: 048
     Dates: start: 20050303
  2. THYROID TAB [Concomitant]
  3. ADRENAL PILL [Concomitant]

REACTIONS (5)
  - DYSPNOEA [None]
  - EYE IRRITATION [None]
  - INSOMNIA [None]
  - NAUSEA [None]
  - RASH [None]
